FAERS Safety Report 4822894-8 (Version None)
Quarter: 2005Q4

REPORT INFORMATION
  Report Type: 
  Country: None (occurrence: None)
  Receive Date: 20051108
  Receipt Date: 20050919
  Transmission Date: 20060501
  Serious: Yes (Other)
  Sender: FDA-Public Use
  Company Number: PHHO2005CA14988

PATIENT
  Age: 43 Year
  Sex: Male

DRUGS (1)
  1. CLOZARIL [Suspect]
     Indication: SCHIZOPHRENIA
     Dosage: 350 MG AM, 400 MG QHS
     Dates: start: 19900101

REACTIONS (11)
  - ANTINUCLEAR ANTIBODY POSITIVE [None]
  - APATHY [None]
  - CARDIOMEGALY [None]
  - CARDIOMYOPATHY [None]
  - COMMUNICATION DISORDER [None]
  - HEART RATE IRREGULAR [None]
  - OBSESSIVE-COMPULSIVE DISORDER [None]
  - SOCIAL AVOIDANT BEHAVIOUR [None]
  - SPEECH DISORDER [None]
  - SYSTEMIC LUPUS ERYTHEMATOSUS [None]
  - TACHYCARDIA [None]
